FAERS Safety Report 9399826 (Version 2)
Quarter: 2013Q3

REPORT INFORMATION
  Report Type: Spontaneous
  Country: US (occurrence: US)
  Receive Date: 20130715
  Receipt Date: 20130806
  Transmission Date: 20140515
  Serious: No
  Sender: FDA-Public Use
  Company Number: US-JNJFOC-20130705677

PATIENT
  Age: 36 Year
  Sex: Female
  Weight: 43.55 kg

DRUGS (2)
  1. DURAGESIC [Suspect]
     Indication: MULTIPLE SCLEROSIS
     Route: 062
     Dates: start: 201201
  2. DURAGESIC [Suspect]
     Indication: MULTIPLE SCLEROSIS
     Route: 062

REACTIONS (3)
  - Wrong technique in drug usage process [Not Recovered/Not Resolved]
  - Drug prescribing error [Not Recovered/Not Resolved]
  - Product quality issue [Unknown]
